FAERS Safety Report 15640216 (Version 1)
Quarter: 2018Q4

REPORT INFORMATION
  Report Type: Spontaneous
  Country: US (occurrence: US)
  Receive Date: 20181120
  Receipt Date: 20181120
  Transmission Date: 20190205
  Serious: No
  Sender: FDA-Public Use
  Company Number: US-PFIZER INC-2018462939

PATIENT
  Age: 78 Year
  Sex: Female
  Weight: 74.39 kg

DRUGS (2)
  1. IBRANCE [Suspect]
     Active Substance: PALBOCICLIB
     Indication: BREAST CANCER METASTATIC
     Dosage: 125 MG, CYCLIC
     Route: 048
  2. FEMARA [Concomitant]
     Active Substance: LETROZOLE
     Indication: HORMONE THERAPY
     Dosage: UNK, DAILY

REACTIONS (4)
  - Skin disorder [Unknown]
  - Neoplasm progression [Unknown]
  - Joint swelling [Not Recovered/Not Resolved]
  - Rash macular [Not Recovered/Not Resolved]
